FAERS Safety Report 7296620-X (Version None)
Quarter: 2011Q1

REPORT INFORMATION
  Report Type: 
  Country: None (occurrence: None)
  Receive Date: 20110216
  Receipt Date: 20110208
  Transmission Date: 20110831
  Serious: Yes (Other)
  Sender: FDA-Public Use
  Company Number: PHHY2011JP10299

PATIENT
  Sex: Female

DRUGS (1)
  1. LOCHOL [Suspect]
     Dosage: UNK
     Route: 048

REACTIONS (2)
  - INTERSTITIAL LUNG DISEASE [None]
  - LOW DENSITY LIPOPROTEIN INCREASED [None]
